FAERS Safety Report 9948657 (Version 2)
Quarter: 2014Q1

REPORT INFORMATION
  Report Type: Spontaneous
  Country: US (occurrence: US)
  Receive Date: 20140303
  Receipt Date: 20140303
  Transmission Date: 20141002
  Serious: No
  Sender: FDA-Public Use
  Company Number: US-ABBVIE-13P-163-1044013-00

PATIENT
  Sex: Male

DRUGS (1)
  1. HUMIRA [Suspect]
     Indication: PSORIASIS
     Route: 058
     Dates: start: 20121017, end: 20130109

REACTIONS (5)
  - Skin reaction [Unknown]
  - Hypersensitivity [Unknown]
  - Myalgia [Unknown]
  - Arthralgia [Unknown]
  - Cough [Unknown]
